FAERS Safety Report 9070062 (Version 1)
Quarter: 2013Q1

REPORT INFORMATION
  Report Type: Report from Study
  Country: US (occurrence: US)
  Receive Date: 20130129
  Receipt Date: 20130129
  Transmission Date: 20140127
  Serious: Yes (Other)
  Sender: FDA-Public Use
  Company Number: US-ABBOTT-12P-163-0926897-00

PATIENT
  Age: 54 None
  Sex: Female

DRUGS (1)
  1. HUMIRA 40 MG/0.8 ML PEN [Suspect]
     Indication: RHEUMATOID ARTHRITIS
     Dates: start: 20090210, end: 20120412

REACTIONS (5)
  - Lymphoma [Unknown]
  - Lymphadenopathy [Unknown]
  - Injection site rash [Unknown]
  - Psoriasis [Unknown]
  - Infection [Unknown]
